FAERS Safety Report 4294245-1 (Version None)
Quarter: 2004Q1

REPORT INFORMATION
  Report Type: 
  Country: None (occurrence: None)
  Receive Date: 20040212
  Receipt Date: 20040212
  Transmission Date: 20041129
  Serious: Yes (Hospitalization)
  Sender: FDA-Public Use
  Company Number: None

PATIENT
  Sex: Female

DRUGS (6)
  1. LEVAQUIN [Suspect]
     Indication: CHRONIC OBSTRUCTIVE AIRWAYS DISEASE EXACERBATED
     Dates: start: 20040123, end: 20040202
  2. LIPITOR [Concomitant]
  3. FOSAMAX [Concomitant]
  4. ADVAIR 50/100 [Concomitant]
  5. ALB/ATROVENT [Concomitant]
  6. PRILOSEC [Concomitant]

REACTIONS (1)
  - PANCREATITIS [None]
